FAERS Safety Report 5399842-8 (Version None)
Quarter: 2007Q3

REPORT INFORMATION
  Report Type: 
  Country: None (occurrence: None)
  Receive Date: 20070730
  Receipt Date: 20070723
  Transmission Date: 20080115
  Serious: Yes (Death, Hospitalization)
  Sender: FDA-Public Use
  Company Number: PHBS2007DE12397

PATIENT
  Age: 56 Year
  Sex: Male

DRUGS (7)
  1. ZOLEDRONIC ACID [Suspect]
     Dosage: 8 MG A MONTH
     Route: 042
  2. OSTAC [Concomitant]
  3. FLUMID [Concomitant]
  4. ESTRACYT [Concomitant]
  5. TAXOTERE [Concomitant]
  6. NAVELBINE [Concomitant]
  7. IXOTEN [Concomitant]

REACTIONS (7)
  - DENTAL OPERATION [None]
  - IMPAIRED HEALING [None]
  - JAW FRACTURE [None]
  - OSTEONECROSIS [None]
  - PAIN IN JAW [None]
  - PROSTATE CANCER [None]
  - TOOTH EXTRACTION [None]
